FAERS Safety Report 9294807 (Version 1)
Quarter: 2013Q1

REPORT INFORMATION
  Report Type: Spontaneous
  Country: US (occurrence: None)
  Receive Date: 20121227
  Receipt Date: 20121227
  Transmission Date: 20140127
  Serious: Yes (Death, Other)
  Sender: FDA-Public Use
  Company Number: PHEH2011US009991

PATIENT
  Age: 73 Year
  Sex: Female

DRUGS (3)
  1. EXJADE [Suspect]
     Indication: IRON METABOLISM DISORDER
     Route: 048
     Dates: start: 20111101, end: 20111108
  2. ASA (ACETYLSALYLIC ACID) [Concomitant]
  3. ALLOPURINOL [Concomitant]

REACTIONS (7)
  - Neoplasm [None]
  - Serum ferritin increased [None]
  - Diarrhoea [None]
  - Platelet count decreased [None]
  - Abdominal pain upper [None]
  - Haemoglobin decreased [None]
  - Malignant neoplasm progression [None]
